FAERS Safety Report 6509963-1 (Version None)
Quarter: 2009Q4

REPORT INFORMATION
  Report Type: 
  Country: None (occurrence: None)
  Receive Date: 20091222
  Receipt Date: 20091217
  Transmission Date: 20100525
  Serious: Yes (Other)
  Sender: FDA-Public Use
  Company Number: PHHY2009ZA57162

PATIENT

DRUGS (1)
  1. VOLTAREN [Suspect]
     Dosage: 75MG/3ML
     Route: 013

REACTIONS (1)
  - INCORRECT ROUTE OF DRUG ADMINISTRATION [None]
